FAERS Safety Report 5343332-5 (Version None)
Quarter: 2007Q2

REPORT INFORMATION
  Report Type: 
  Country: None (occurrence: None)
  Receive Date: 20070502
  Receipt Date: 20060505
  Transmission Date: 20071010
  Serious: Yes (Other)
  Sender: FDA-Public Use
  Company Number: PHEH2006US05991

PATIENT
  Age: 75 Year
  Sex: Female

DRUGS (5)
  1. LOTREL [Suspect]
     Indication: HYPERTENSION
     Dosage: 10/20 MG, QD, ORAL
     Route: 048
     Dates: start: 20060424, end: 20060428
  2. CLONIDINE [Concomitant]
  3. ATENOLOL [Concomitant]
  4. PERCOCET [Concomitant]
  5. ULTRACET [Concomitant]

REACTIONS (5)
  - BLOOD PRESSURE INADEQUATELY CONTROLLED [None]
  - DYSURIA [None]
  - ERYTHEMA [None]
  - HEART RATE INCREASED [None]
  - PALPITATIONS [None]
